FAERS Safety Report 8100432-4 (Version None)
Quarter: 2012Q1

REPORT INFORMATION
  Report Type: 
  Country: None (occurrence: None)
  Receive Date: 20120129
  Receipt Date: 20111101
  Transmission Date: 20120608
  Serious: No
  Sender: FDA-Public Use
  Company Number: US-ABBOTT-11P-163-0870369-00

PATIENT
  Age: 58 Year
  Sex: Male

DRUGS (1)
  1. HUMIRA [Suspect]
     Indication: PSORIASIS
     Dosage: INITIAL DOSE
     Route: 058
     Dates: start: 20111029

REACTIONS (4)
  - PYREXIA [None]
  - NASAL CONGESTION [None]
  - NASOPHARYNGITIS [None]
  - UPPER-AIRWAY COUGH SYNDROME [None]
